FAERS Safety Report 5945840-2 (Version None)
Quarter: 2008Q4

REPORT INFORMATION
  Report Type: 
  Country: None (occurrence: None)
  Receive Date: 20081110
  Receipt Date: 20081029
  Transmission Date: 20090506
  Serious: Yes (Hospitalization)
  Sender: FDA-Public Use
  Company Number: JP-ELI_LILLY_AND_COMPANY-JP200809000443

PATIENT
  Sex: Male
  Weight: 73.3 kg

DRUGS (24)
  1. PEMETREXED [Suspect]
     Indication: PLEURAL MESOTHELIOMA MALIGNANT
     Dosage: 910 MG, UNK
     Route: 042
     Dates: start: 20080225, end: 20080225
  2. PEMETREXED [Suspect]
     Dosage: 885 MG, UNK
     Route: 042
     Dates: start: 20080318, end: 20080318
  3. PEMETREXED [Suspect]
     Dosage: 875 MG, UNK
     Route: 042
     Dates: start: 20080418, end: 20080418
  4. CISPLATIN [Suspect]
     Indication: PLEURAL MESOTHELIOMA MALIGNANT
     Dosage: 136 MG, UNK
     Route: 042
     Dates: start: 20080225, end: 20080225
  5. CISPLATIN [Suspect]
     Dosage: 106 MG, UNK
     Route: 042
     Dates: start: 20080318, end: 20080318
  6. PARAPLATIN [Concomitant]
     Indication: PLEURAL MESOTHELIOMA MALIGNANT
     Dosage: 465 MG, UNK
     Route: 042
     Dates: start: 20080418, end: 20080418
  7. PANVITAN [Concomitant]
     Dosage: 1 G, DAILY (1/D)
     Route: 048
     Dates: start: 20080218, end: 20080603
  8. CYANOCOBALAMIN [Concomitant]
     Dosage: 1 MG, UNK
     Route: 030
     Dates: start: 20080218, end: 20080421
  9. RABEPRAZOLE SODIUM [Concomitant]
     Indication: PROPHYLAXIS
     Dosage: 10 MG, DAILY (1/D)
     Route: 048
     Dates: end: 20080609
  10. LUPRAC [Concomitant]
     Indication: HYPERTENSION
     Dosage: 4 MG, DAILY (1/D)
     Route: 048
     Dates: end: 20080609
  11. HARNAL [Concomitant]
     Indication: BENIGN PROSTATIC HYPERPLASIA
     Dosage: 0.2 MG, DAILY (1/D)
     Route: 048
     Dates: end: 20080609
  12. ASTOMIN [Concomitant]
     Indication: PROPHYLAXIS
     Dosage: 60 MG, DAILY (1/D)
     Route: 048
     Dates: end: 20080609
  13. PURSENNID [Concomitant]
     Indication: PROPHYLAXIS
     Dosage: 24 MG, DAILY (1/D)
     Route: 048
     Dates: end: 20080609
  14. MAGLAX [Concomitant]
     Indication: PROPHYLAXIS
     Dosage: 1500 MG, DAILY (1/D)
     Route: 048
     Dates: end: 20080609
  15. MUCODYNE [Concomitant]
     Indication: PROPHYLAXIS
     Dosage: 750 MG, DAILY (1/D)
     Route: 048
     Dates: end: 20080609
  16. LASIX [Concomitant]
     Indication: HYPERTENSION
     Dosage: 20 MG, DAILY (1/D)
     Route: 048
     Dates: end: 20080609
  17. OXYCONTIN [Concomitant]
     Indication: CANCER PAIN
     Dosage: 20 MG, DAILY (1/D)
     Route: 048
     Dates: end: 20080226
  18. OXYCONTIN [Concomitant]
     Dosage: 30 MG, DAILY (1/D)
     Route: 048
     Dates: start: 20080227, end: 20080304
  19. OXYCONTIN [Concomitant]
     Dosage: 40 MG, DAILY (1/D)
     Route: 048
     Dates: start: 20080305, end: 20080406
  20. OXYCONTIN [Concomitant]
     Dosage: 50 MG, DAILY (1/D)
     Route: 048
     Dates: start: 20080407, end: 20080409
  21. LOXONIN [Concomitant]
     Indication: CANCER PAIN
     Dosage: 180 MG, DAILY (1/D)
     Route: 048
     Dates: start: 20080326, end: 20080609
  22. FENTANYL CITRATE [Concomitant]
     Indication: CANCER PAIN
     Dosage: 2.5 MG, OTHER
     Route: 062
     Dates: start: 20080409, end: 20080411
  23. FENTANYL CITRATE [Concomitant]
     Dosage: 3.75 MG, OTHER
     Route: 062
     Dates: start: 20080412, end: 20080413
  24. FENTANYL CITRATE [Concomitant]
     Dosage: 5 MG, OTHER
     Route: 062
     Dates: start: 20080414, end: 20080419

REACTIONS (6)
  - ANAEMIA [None]
  - LUNG INFILTRATION [None]
  - LYMPHOCYTE COUNT DECREASED [None]
  - NEUTROPHIL COUNT DECREASED [None]
  - PNEUMONIA [None]
  - WHITE BLOOD CELL COUNT DECREASED [None]
